FAERS Safety Report 19412036 (Version 1)
Quarter: 2021Q2

REPORT INFORMATION
  Report Type: Spontaneous
  Country: US (occurrence: US)
  Receive Date: 20210614
  Receipt Date: 20210614
  Transmission Date: 20210717
  Serious: No
  Sender: FDA-Public Use
  Company Number: US-COVIS PHARMA GMBH-2020COV00457

PATIENT
  Sex: Female

DRUGS (10)
  1. PRILOSEC [Suspect]
     Active Substance: OMEPRAZOLE MAGNESIUM
     Dosage: UNK
     Route: 048
  2. FENTANYL. [Concomitant]
     Active Substance: FENTANYL
  3. TRAZODONE [Concomitant]
     Active Substance: TRAZODONE HYDROCHLORIDE
  4. CARISOPRODOL. [Concomitant]
     Active Substance: CARISOPRODOL
  5. PHENERGAN VC [Concomitant]
     Active Substance: PHENYLEPHRINE HYDROCHLORIDE\PROMETHAZINE HYDROCHLORIDE
  6. ZOLOFT [Concomitant]
     Active Substance: SERTRALINE HYDROCHLORIDE
  7. OXYCODONE [Concomitant]
     Active Substance: OXYCODONE
  8. OPANA [Concomitant]
     Active Substance: OXYMORPHONE HYDROCHLORIDE
  9. HYDROMORPHONE [Concomitant]
     Active Substance: HYDROMORPHONE
  10. KLONOPIN [Concomitant]
     Active Substance: CLONAZEPAM

REACTIONS (13)
  - Neck pain [Unknown]
  - Malaise [Unknown]
  - Gait disturbance [Unknown]
  - Nightmare [Unknown]
  - Fall [Unknown]
  - Mental disorder [Unknown]
  - Insomnia [Unknown]
  - Contusion [Unknown]
  - Dementia [Unknown]
  - Rheumatoid arthritis [Unknown]
  - Muscle disorder [Unknown]
  - Skin mass [Unknown]
  - Vomiting [Unknown]
